FAERS Safety Report 24160676 (Version 1)
Quarter: 2024Q3

REPORT INFORMATION
  Report Type: Spontaneous
  Country: DE (occurrence: DE)
  Receive Date: 20240801
  Receipt Date: 20240801
  Transmission Date: 20241016
  Serious: No
  Sender: ALKEM
  Company Number: DE-ALKEM LABORATORIES LIMITED-DE-ALKEM-2023-12886

PATIENT
  Age: 82 Year
  Sex: Male

DRUGS (19)
  1. ITRACONAZOLE [Suspect]
     Active Substance: ITRACONAZOLE
     Indication: Body tinea
     Dosage: 1 DOSAGE FORM, BID (CAPSULE)
     Route: 065
  2. ITRACONAZOLE [Suspect]
     Active Substance: ITRACONAZOLE
     Dosage: 50 MILLIGRAM (5 DAY A WEEK) (TABLET)
     Route: 065
  3. ITRACONAZOLE [Suspect]
     Active Substance: ITRACONAZOLE
     Dosage: 50 MG/D, BID (2 TIMES) (TABLET)
     Route: 065
  4. ITRACONAZOLE [Suspect]
     Active Substance: ITRACONAZOLE
     Dosage: 50 MILLIGRAM (TWICE WEEKLY) (TABLET)
     Route: 065
  5. FLUCONAZOLE [Suspect]
     Active Substance: FLUCONAZOLE
     Indication: Body tinea
     Dosage: 50 MILLIGRAM, OD (ONCE DAILY)
     Route: 065
  6. FLUCONAZOLE [Suspect]
     Active Substance: FLUCONAZOLE
     Dosage: 200 MILLIGRAM, ONCE WEEKLY
     Route: 065
  7. VORICONAZOLE [Suspect]
     Active Substance: VORICONAZOLE
     Indication: Body tinea
     Dosage: 400 MILLIGRAM, OD
     Route: 065
  8. VORICONAZOLE [Suspect]
     Active Substance: VORICONAZOLE
     Dosage: 200 MILLIGRAM (TWICE A WEEK)
     Route: 065
  9. Acetonatum Ungt [Concomitant]
     Indication: Body tinea
     Dosage: UNK
     Route: 065
  10. Aciclopiroxolamine [Concomitant]
     Indication: Body tinea
     Dosage: UNK
     Route: 065
  11. BIFONAZOLE [Concomitant]
     Active Substance: BIFONAZOLE
     Indication: Body tinea
     Dosage: UNK
     Route: 061
  12. CICLOPIROX [Concomitant]
     Active Substance: CICLOPIROX
     Indication: Body tinea
     Dosage: UNK (IN THE MORNING AND EVENING ALTERNATELY)
     Route: 065
  13. CICLOPIROX [Concomitant]
     Active Substance: CICLOPIROX
     Dosage: UNK (CREAM)
     Route: 061
  14. MICONAZOLE [Concomitant]
     Active Substance: MICONAZOLE\MICONAZOLE NITRATE
     Indication: Body tinea
     Dosage: UNK (IN THE MORNING AND EVENING ALTERNATELY)
     Route: 061
  15. Octenidine NRF [Concomitant]
     Indication: Body tinea
     Dosage: UNK, QD
     Route: 065
  16. PREDNICARBATE [Concomitant]
     Active Substance: PREDNICARBATE
     Indication: Body tinea
     Dosage: UNK (HYDROPHILIC)
     Route: 065
  17. TERBINAFINE [Concomitant]
     Active Substance: TERBINAFINE
     Indication: Body tinea
     Dosage: 250 MILLIGRAM
     Route: 065
  18. TERBINAFINE [Concomitant]
     Active Substance: TERBINAFINE
     Indication: Onychomycosis
     Dosage: 250 MILLIGRAM (2 TIMES PER WEEK (EVERY 3 DAYS))
     Route: 065
  19. TERBINAFINE [Concomitant]
     Active Substance: TERBINAFINE
     Dosage: 250 MILLIGRAM, OD
     Route: 065

REACTIONS (3)
  - Drug intolerance [Unknown]
  - Hepatic enzyme increased [Unknown]
  - Drug ineffective [Unknown]
